FAERS Safety Report 11796662 (Version 1)
Quarter: 2015Q4

REPORT INFORMATION
  Report Type: Spontaneous
  Country: JP (occurrence: JP)
  Receive Date: 20151203
  Receipt Date: 20151203
  Transmission Date: 20160305
  Serious: Yes (Other)
  Sender: FDA-Public Use
  Company Number: JP-GLAXOSMITHKLINE-JP2015JPN169975

PATIENT
  Age: 63 Year
  Sex: Male

DRUGS (4)
  1. VALTREX [Suspect]
     Active Substance: VALACYCLOVIR HYDROCHLORIDE
     Indication: VIRAL UVEITIS
     Dosage: 1000 MG, TID
     Route: 048
     Dates: start: 20110310, end: 20110315
  2. LYRICA [Suspect]
     Active Substance: PREGABALIN
     Indication: POST HERPETIC NEURALGIA
     Dosage: 50 MG, BID
     Route: 048
     Dates: start: 20110302, end: 20110313
  3. LEXIN (JAPAN) [Concomitant]
     Active Substance: CARBAMAZEPINE
     Dosage: 100 MG, QD
     Dates: end: 20110303
  4. METHYCOBAL [Concomitant]
     Active Substance: METHYLCOBALAMIN
     Dosage: 500 ?G, TID
     Dates: start: 20110210

REACTIONS (2)
  - Dizziness [Unknown]
  - Fall [Recovering/Resolving]

NARRATIVE: CASE EVENT DATE: 20110313
